FAERS Safety Report 8291235 (Version 3)
Quarter: 2013Q1

REPORT INFORMATION
  Report Type: Spontaneous
  Country: US (occurrence: US)
  Receive Date: 20111214
  Receipt Date: 20130219
  Transmission Date: 20140127
  Serious: Yes (Hospitalization, Other)
  Sender: FDA-Public Use
  Company Number: US-ROCHE-1008278

PATIENT
  Age: 71 Year
  Sex: Male
  Weight: 95.34 kg

DRUGS (9)
  1. ZELBORAF [Suspect]
     Indication: MALIGNANT MELANOMA
     Route: 048
     Dates: end: 20111209
  2. ZELBORAF [Suspect]
     Route: 048
  3. SYNTHROID [Concomitant]
     Indication: HYPOTHYROIDISM
     Route: 048
  4. LIPITOR [Concomitant]
     Indication: BLOOD CHOLESTEROL INCREASED
     Route: 048
     Dates: end: 20110908
  5. LOPRESSOR [Concomitant]
     Indication: HEART RATE INCREASED
     Route: 048
     Dates: start: 201111
  6. METOPROLOL TARTRATE [Concomitant]
     Dosage: HALF TABLET DAILY
     Route: 065
  7. PREDNISONE [Concomitant]
     Dosage: DAILY
     Route: 065
  8. TEMODAR [Concomitant]
     Route: 065
  9. PRILOSEC [Concomitant]

REACTIONS (11)
  - Ventricular tachycardia [Unknown]
  - Melanoma recurrent [Unknown]
  - Sunburn [Recovered/Resolved]
  - Eye pain [Recovered/Resolved]
  - Night sweats [Recovering/Resolving]
  - Fatigue [Recovering/Resolving]
  - Alopecia [Not Recovered/Not Resolved]
  - Headache [Recovered/Resolved]
  - Ocular hyperaemia [Recovered/Resolved]
  - Rash [Unknown]
  - Neuropathy peripheral [Recovered/Resolved]
